FAERS Safety Report 9882528 (Version 1)
Quarter: 2014Q1

REPORT INFORMATION
  Report Type: Spontaneous
  Country: SA (occurrence: SA)
  Receive Date: 20140207
  Receipt Date: 20140207
  Transmission Date: 20141002
  Serious: Yes (Other)
  Sender: FDA-Public Use
  Company Number: PHHY2014SA015358

PATIENT
  Age: 26 Year
  Sex: Female

DRUGS (3)
  1. CICLOSPORIN [Suspect]
     Indication: RENAL TRANSPLANT
     Dosage: 14 MG/KG, PER DAY
  2. PREDNISOLONE [Suspect]
  3. RIFAMPICIN [Suspect]

REACTIONS (3)
  - Breech presentation [Unknown]
  - Premature labour [Unknown]
  - Maternal exposure during pregnancy [Unknown]
